FAERS Safety Report 10225082 (Version 1)
Quarter: 2014Q2

REPORT INFORMATION
  Report Type: Spontaneous
  Country: IT (occurrence: IT)
  Receive Date: 20140609
  Receipt Date: 20140609
  Transmission Date: 20141212
  Serious: Yes (Hospitalization)
  Sender: FDA-Public Use
  Company Number: IT-ACTAVIS-2013-25428

PATIENT
  Age: 21 Year
  Sex: Male

DRUGS (2)
  1. LYRICA [Suspect]
     Indication: HERPES ZOSTER
     Dosage: 1 DF, TOTAL
     Route: 048
     Dates: start: 20130604, end: 20130604
  2. ACYCLOVIR (UNKNOWN) [Suspect]
     Indication: HERPES ZOSTER
     Dosage: 2 DF, TOTAL
     Route: 048
     Dates: start: 20130604, end: 20130604

REACTIONS (2)
  - Asthenia [Unknown]
  - Somnolence [Unknown]
